FAERS Safety Report 20233212 (Version 2)
Quarter: 2025Q4

REPORT INFORMATION
  Report Type: Spontaneous
  Country: EU (occurrence: EU)
  Receive Date: 20211227
  Receipt Date: 20251208
  Transmission Date: 20260118
  Serious: Yes (Hospitalization, Disabling, Congenital Anomaly, Other)
  Sender: TEVA
  Company Number: None

PATIENT
  Age: 0 Year
  Sex: Female

DRUGS (3)
  1. OLANZAPINE [Suspect]
     Active Substance: OLANZAPINE
     Indication: Depression
     Dosage: STRENGTH AND DOSE: UNKNOWN
     Route: 064
     Dates: start: 2018, end: 20190320
  2. ANAFRANIL [Suspect]
     Active Substance: CLOMIPRAMINE HYDROCHLORIDE
     Indication: Depression
     Dosage: ANAFRANIL RETARD
     Route: 064
     Dates: start: 2018, end: 20190320
  3. SERTRALINE [Suspect]
     Active Substance: SERTRALINE HYDROCHLORIDE
     Indication: Depression
     Route: 064
     Dates: start: 2018, end: 20190320

REACTIONS (5)
  - Cardiomegaly [Unknown]
  - Foetal exposure during pregnancy [Recovered/Resolved]
  - Tachypnoea [Recovering/Resolving]
  - Impaired quality of life [Recovering/Resolving]
  - Cardiac failure [Recovered/Resolved]

NARRATIVE: CASE EVENT DATE: 20190101
